FAERS Safety Report 7765581-9 (Version None)
Quarter: 2011Q3

REPORT INFORMATION
  Report Type: 
  Country: None (occurrence: None)
  Receive Date: 20110921
  Receipt Date: 20110913
  Transmission Date: 20111222
  Serious: Yes (Other)
  Sender: FDA-Public Use
  Company Number: PHEH2010US01810

PATIENT
  Sex: Male

DRUGS (2)
  1. AREDIA [Suspect]
  2. ZOMETA [Suspect]

REACTIONS (17)
  - LOCAL SWELLING [None]
  - GENERAL PHYSICAL HEALTH DETERIORATION [None]
  - ANXIETY [None]
  - MULTIPLE MYELOMA [None]
  - PROSTATE CANCER [None]
  - SWELLING [None]
  - PNEUMONIA [None]
  - SUBDURAL HAEMATOMA [None]
  - OSTEONECROSIS OF JAW [None]
  - ANHEDONIA [None]
  - PYREXIA [None]
  - FALL [None]
  - OPEN WOUND [None]
  - SINUS DISORDER [None]
  - PAIN [None]
  - HEAD INJURY [None]
  - CHEST PAIN [None]
